FAERS Safety Report 17871384 (Version 1)
Quarter: 2020Q2

REPORT INFORMATION
  Report Type: Spontaneous
  Country: US (occurrence: US)
  Receive Date: 20200608
  Receipt Date: 20200608
  Transmission Date: 20200714
  Serious: Yes (Other)
  Sender: FDA-Public Use
  Company Number: None

PATIENT
  Age: 58 Year
  Sex: Male
  Weight: 78.75 kg

DRUGS (7)
  1. FLUTICASONE 50MCG [Concomitant]
     Active Substance: FLUTICASONE
  2. METOPROLOL SUCCINATE 25MG [Concomitant]
     Active Substance: METOPROLOL SUCCINATE
  3. LORAZEPAM 0.5MG [Concomitant]
     Active Substance: LORAZEPAM
  4. TRIAMCINOLONE 0.1% [Concomitant]
     Active Substance: TRIAMCINOLONE
  5. FLUOXETINE [Concomitant]
     Active Substance: FLUOXETINE HYDROCHLORIDE
  6. LORATADINE 10MG [Concomitant]
     Active Substance: LORATADINE
  7. TEMOZOLOMIDE. [Suspect]
     Active Substance: TEMOZOLOMIDE
     Indication: BRAIN NEOPLASM MALIGNANT
     Dosage: ?          OTHER FREQUENCY:QDX5 DAYS Q28DAYS;?
     Route: 048
     Dates: start: 20200515, end: 20200608

REACTIONS (1)
  - Hospice care [None]

NARRATIVE: CASE EVENT DATE: 20200608
